FAERS Safety Report 6856064-9 (Version None)
Quarter: 2010Q3

REPORT INFORMATION
  Report Type: 
  Country: None (occurrence: None)
  Receive Date: 20100715
  Receipt Date: 20100715
  Transmission Date: 20110219
  Serious: Yes (Life-Threatening)
  Sender: FDA-Public Use
  Company Number: None

PATIENT
  Sex: Female
  Weight: 150 kg

DRUGS (1)
  1. NUVIGIL [Suspect]
     Indication: FATIGUE
     Dosage: 50 MG QAM PO
     Route: 048
     Dates: start: 20100601, end: 20100714

REACTIONS (1)
  - ANAPHYLACTIC REACTION [None]
